FAERS Safety Report 5652465-5 (Version None)
Quarter: 2008Q1

REPORT INFORMATION
  Report Type: 
  Country: None (occurrence: None)
  Receive Date: 20080305
  Receipt Date: 20080305
  Transmission Date: 20080703
  Serious: Yes (Death)
  Sender: FDA-Public Use
  Company Number: None

PATIENT
  Sex: Female
  Weight: 69.4003 kg

DRUGS (22)
  1. ORENCIA [Suspect]
     Indication: RHEUMATOID ARTHRITIS
     Dosage: 750MG IV DRIP
     Route: 041
     Dates: start: 20080215, end: 20080215
  2. ORENCIA [Suspect]
  3. ENBREL [Concomitant]
  4. ARAVA [Concomitant]
  5. CELEBREX [Concomitant]
  6. HYDROCHLOROTHIAZIDE [Concomitant]
  7. COREG [Concomitant]
  8. NORVASC [Concomitant]
  9. LIPITOR [Concomitant]
  10. DETROL LA [Concomitant]
  11. LEVOTHYROXINE SODIUM [Concomitant]
  12. FOSAMAX [Concomitant]
  13. LEXAPRO [Concomitant]
  14. FEOSOL [Concomitant]
  15. ASPIRIN [Concomitant]
  16. CALCIUM AND MAGNESIUM SUPPLEMENTS [Concomitant]
  17. COD LIVER OIL [Concomitant]
  18. GARLIC [Concomitant]
  19. M.V.I. [Concomitant]
  20. BENICAR [Concomitant]
  21. VENLAFAXINE HCL [Concomitant]
  22. LIDODERM [Concomitant]

REACTIONS (3)
  - AORTIC ANEURYSM RUPTURE [None]
  - MYOCARDIAL INFARCTION [None]
  - SUDDEN DEATH [None]
